FAERS Safety Report 7631614-3 (Version None)
Quarter: 2011Q3

REPORT INFORMATION
  Report Type: 
  Country: None (occurrence: None)
  Receive Date: 20110725
  Receipt Date: 20110121
  Transmission Date: 20111222
  Serious: No
  Sender: FDA-Public Use
  Company Number: US-BRISTOL-MYERS SQUIBB COMPANY-15503634

PATIENT
  Age: 85 Year
  Sex: Female
  Weight: 32 kg

DRUGS (1)
  1. COUMADIN [Suspect]

REACTIONS (1)
  - DIARRHOEA [None]
